FAERS Safety Report 19194986 (Version 2)
Quarter: 2021Q2

REPORT INFORMATION
  Report Type: Spontaneous
  Country: NL (occurrence: DE)
  Receive Date: 20210429
  Receipt Date: 20210511
  Transmission Date: 20210717
  Serious: Yes (Other)
  Sender: FDA-Public Use
  Company Number: DE-FRESENIUS KABI-FK202104151

PATIENT
  Age: 65 Year
  Sex: Female
  Weight: 55 kg

DRUGS (4)
  1. PROPOFOL (MANUFACTURER UNKNOWN) [Suspect]
     Active Substance: PROPOFOL
     Indication: ENDOSCOPY UPPER GASTROINTESTINAL TRACT
     Dosage: 320 MG
     Route: 065
     Dates: start: 20210331, end: 20210331
  2. PROPOFOL (MANUFACTURER UNKNOWN) [Suspect]
     Active Substance: PROPOFOL
     Indication: COLONOSCOPY
  3. MIDAZOLAM. [Concomitant]
     Active Substance: MIDAZOLAM
     Indication: ENDOSCOPY UPPER GASTROINTESTINAL TRACT
     Dosage: 3 MG
     Dates: start: 20210331, end: 20210331
  4. MIDAZOLAM. [Concomitant]
     Active Substance: MIDAZOLAM
     Indication: COLONOSCOPY

REACTIONS (11)
  - Administration site swelling [Recovering/Resolving]
  - Paravenous drug administration [Recovering/Resolving]
  - Administration site pain [Recovering/Resolving]
  - Nervousness [Not Recovered/Not Resolved]
  - Hypoaesthesia [Not Recovered/Not Resolved]
  - Headache [Not Recovered/Not Resolved]
  - Muscle spasms [Not Recovered/Not Resolved]
  - Application site erythema [Recovering/Resolving]
  - Skin discolouration [Not Recovered/Not Resolved]
  - Cardiac flutter [Not Recovered/Not Resolved]
  - Administration site warmth [Recovering/Resolving]

NARRATIVE: CASE EVENT DATE: 2021
